FAERS Safety Report 5956166-5 (Version None)
Quarter: 2008Q4

REPORT INFORMATION
  Report Type: 
  Country: None (occurrence: None)
  Receive Date: 20081113
  Receipt Date: 20081030
  Transmission Date: 20090506
  Serious: Yes (Death, Hospitalization, Other)
  Sender: FDA-Public Use
  Company Number: A-US2007-13980

PATIENT
  Age: 70 Year
  Sex: Male

DRUGS (8)
  1. TRACLEER [Suspect]
     Indication: PULMONARY HYPERTENSION
     Dosage: 62.5 MG, BID, ORAL
     Route: 048
     Dates: start: 20060914, end: 20061021
  2. TRACLEER [Suspect]
     Indication: PULMONARY HYPERTENSION
     Dosage: 62.5 MG, BID, ORAL
     Route: 048
     Dates: start: 20061101, end: 20061201
  3. ZOCOR [Concomitant]
  4. PREDNISOLONE ACETATE [Concomitant]
  5. ATENOLOL [Concomitant]
  6. PLAVIX [Concomitant]
  7. ASPIRIN [Concomitant]
  8. SPIRONOLACTONE [Concomitant]

REACTIONS (6)
  - ATRIAL FIBRILLATION [None]
  - ATRIAL FLUTTER [None]
  - DYSPNOEA [None]
  - HEART RATE INCREASED [None]
  - OFF LABEL USE [None]
  - RESPIRATORY FAILURE [None]
